FAERS Safety Report 14791898 (Version 1)
Quarter: 2018Q2

REPORT INFORMATION
  Report Type: Spontaneous
  Country: US (occurrence: US)
  Receive Date: 20180413
  Receipt Date: 20180413
  Transmission Date: 20180711
  Serious: No
  Sender: FDA-Public Use
  Company Number: None

PATIENT
  Age: 31 Year
  Sex: Female
  Weight: 112.5 kg

DRUGS (13)
  1. LOBATATOLE [Concomitant]
  2. PRENATAL VITAMIN [Concomitant]
     Active Substance: VITAMINS
  3. CPAP MACHINE [Concomitant]
  4. CYMBALTA [Suspect]
     Active Substance: DULOXETINE HYDROCHLORIDE
     Indication: AFFECTIVE DISORDER
     Dosage: ?          QUANTITY:4 CAPSULE(S);?
     Route: 048
     Dates: start: 20090301, end: 20180318
  5. MODAFINIL. [Concomitant]
     Active Substance: MODAFINIL
  6. WELLBUTRIN [Concomitant]
     Active Substance: BUPROPION HYDROCHLORIDE
  7. PROZAC [Concomitant]
     Active Substance: FLUOXETINE HYDROCHLORIDE
  8. BIRTH CONTROL [Concomitant]
     Active Substance: UNSPECIFIED INGREDIENT
  9. IRON [Concomitant]
     Active Substance: IRON
  10. VITAMIN D [Concomitant]
     Active Substance: CHOLECALCIFEROL
  11. FISH OIL [Concomitant]
     Active Substance: FISH OIL
  12. XYREM [Concomitant]
     Active Substance: SODIUM OXYBATE
  13. ACTIVE FOLATE ACID [Concomitant]

REACTIONS (23)
  - Mental impairment [None]
  - Irritability [None]
  - Withdrawal syndrome [None]
  - Nausea [None]
  - Hyperactive pharyngeal reflex [None]
  - Memory impairment [None]
  - Confusional state [None]
  - Insomnia [None]
  - Feeling abnormal [None]
  - Food craving [None]
  - Restlessness [None]
  - Anxiety [None]
  - Neuralgia [None]
  - Fatigue [None]
  - Diarrhoea [None]
  - Apparent death [None]
  - Loss of personal independence in daily activities [None]
  - Anger [None]
  - Pain [None]
  - Paraesthesia [None]
  - Skin burning sensation [None]
  - Skin disorder [None]
  - Depression [None]

NARRATIVE: CASE EVENT DATE: 20180410
